FAERS Safety Report 9657258 (Version 2)
Quarter: 2014Q1

REPORT INFORMATION
  Report Type: Spontaneous
  Country: US (occurrence: US)
  Receive Date: 20131030
  Receipt Date: 20140124
  Transmission Date: 20141002
  Serious: No
  Sender: FDA-Public Use
  Company Number: US-B.I. PHARMACEUTICALS,INC./RIDGEFIELD-2013-BI-33528BP

PATIENT
  Sex: Female

DRUGS (3)
  1. ZANTAC COOL MINT (TABLETS) [Suspect]
     Indication: DYSPEPSIA
     Dosage: 150 MG
     Route: 048
     Dates: start: 20131016, end: 20131017
  2. ZANTAC COOL MINT (TABLETS) [Suspect]
     Indication: DYSPEPSIA
  3. ZANTAC ACID REDUCER TABLET [Concomitant]
     Indication: DYSPEPSIA
     Dosage: 150 MG
     Route: 048

REACTIONS (2)
  - Epigastric discomfort [Recovered/Resolved]
  - Product quality issue [Recovered/Resolved]
